FAERS Safety Report 9722056 (Version 1)
Quarter: 2013Q4

REPORT INFORMATION
  Report Type: Spontaneous
  Country: US (occurrence: US)
  Receive Date: 20131202
  Receipt Date: 20131202
  Transmission Date: 20140711
  Serious: No
  Sender: FDA-Public Use
  Company Number: US-BIOGENIDEC-2013BI086346

PATIENT
  Sex: Female

DRUGS (1)
  1. TECFIDERA [Suspect]
     Indication: MULTIPLE SCLEROSIS
     Route: 048
     Dates: start: 201305

REACTIONS (5)
  - Underdose [Unknown]
  - Adverse drug reaction [Not Recovered/Not Resolved]
  - Burning sensation [Unknown]
  - Flushing [Unknown]
  - Diarrhoea [Unknown]
